FAERS Safety Report 18073911 (Version 2)
Quarter: 2020Q3

REPORT INFORMATION
  Report Type: Spontaneous
  Country: US (occurrence: US)
  Receive Date: 20200727
  Receipt Date: 20200730
  Transmission Date: 20201103
  Serious: Yes (Other)
  Sender: FDA-Public Use
  Company Number: US-PFIZER INC-2020283129

PATIENT
  Age: 72 Year
  Sex: Female

DRUGS (3)
  1. METROL [METHYLERGOMETRINE MALEATE] [Suspect]
     Active Substance: METHYLERGONOVINE MALEATE
     Dosage: UNK
  2. EFFEXOR XR [Suspect]
     Active Substance: VENLAFAXINE HYDROCHLORIDE
     Dosage: UNK
  3. QUINAPRIL. [Suspect]
     Active Substance: QUINAPRIL
     Dosage: UNK

REACTIONS (1)
  - Drug dependence [Unknown]
